FAERS Safety Report 8277789-7 (Version None)
Quarter: 2012Q2

REPORT INFORMATION
  Report Type: 
  Country: None (occurrence: None)
  Receive Date: 20120412
  Receipt Date: 20120403
  Transmission Date: 20120825
  Serious: Yes (Other)
  Sender: FDA-Public Use
  Company Number: US-ASTRAZENECA-2010SE44001

PATIENT
  Age: 87 Year
  Sex: Female

DRUGS (2)
  1. NEXIUM [Suspect]
     Dosage: OD
     Route: 048
  2. NEXIUM [Suspect]
     Dosage: INCREASED TO TWO TIMES A DAY
     Route: 048

REACTIONS (8)
  - MALAISE [None]
  - ADVERSE EVENT [None]
  - GASTRIC ULCER HAEMORRHAGE [None]
  - GASTRIC HAEMORRHAGE [None]
  - INTENTIONAL DRUG MISUSE [None]
  - HEPATIC NEOPLASM MALIGNANT [None]
  - OROPHARYNGEAL DISCOMFORT [None]
  - DRUG PRESCRIBING ERROR [None]
